FAERS Safety Report 19381939 (Version 2)
Quarter: 2021Q3

REPORT INFORMATION
  Report Type: Report from Study
  Country: CO (occurrence: CO)
  Receive Date: 20210607
  Receipt Date: 20210726
  Transmission Date: 20211014
  Serious: Yes (Hospitalization)
  Sender: FDA-Public Use
  Company Number: CO-JNJFOC-20210609666

PATIENT
  Age: 59 Year
  Sex: Female
  Weight: 96 kg

DRUGS (9)
  1. THYROXIN [Concomitant]
     Active Substance: LEVOTHYROXINE
  2. VALSARTAN. [Concomitant]
     Active Substance: VALSARTAN
  3. PREDNISOLONE. [Concomitant]
     Active Substance: PREDNISOLONE
  4. FUROSEMIDE. [Concomitant]
     Active Substance: FUROSEMIDE
  5. SIMPONI [Suspect]
     Active Substance: GOLIMUMAB
     Indication: RHEUMATOID ARTHRITIS
     Route: 058
     Dates: start: 20190405
  6. LEFLUNOMIDE. [Concomitant]
     Active Substance: LEFLUNOMIDE
  7. ISOPTO CARPINE [Concomitant]
     Active Substance: PILOCARPINE HYDROCHLORIDE
  8. SYSTANE (HYPROMELLOSE 2910 (4000 MPA.S)) [Concomitant]
     Active Substance: HYPROMELLOSE 2910 (4000 MPA.S)
  9. CALCIUM WITH VITAMIN D [CALCIUM PHOSPHATE;CALCIUM SODIUM LACTATE;ERGOC [Concomitant]

REACTIONS (1)
  - COVID-19 pneumonia [Recovering/Resolving]

NARRATIVE: CASE EVENT DATE: 20210522
